FAERS Safety Report 21041418 (Version 7)
Quarter: 2024Q3

REPORT INFORMATION
  Report Type: Report from Study
  Country: JP (occurrence: JP)
  Receive Date: 20220705
  Receipt Date: 20240726
  Transmission Date: 20241016
  Serious: Yes (Hospitalization)
  Sender: ARGENX BVBA
  Company Number: JP-ARGENX-2022-ARGX-JP001081

PATIENT
  Age: 54 Year
  Sex: Female
  Weight: 39 kg

DRUGS (14)
  1. EFGARTIGIMOD ALFA [Suspect]
     Active Substance: EFGARTIGIMOD ALFA
     Indication: Myasthenia gravis
     Dosage: 400 MG
     Route: 042
     Dates: start: 20220523, end: 20220613
  2. EFGARTIGIMOD ALFA [Suspect]
     Active Substance: EFGARTIGIMOD ALFA
     Dosage: 400 MG
     Route: 042
     Dates: start: 20220719, end: 20220809
  3. EFGARTIGIMOD ALFA [Suspect]
     Active Substance: EFGARTIGIMOD ALFA
     Dosage: 400 MG
     Route: 042
     Dates: start: 20220906, end: 20220927
  4. EFGARTIGIMOD ALFA [Suspect]
     Active Substance: EFGARTIGIMOD ALFA
     Dosage: 400 MG
     Route: 042
     Dates: start: 20221108, end: 20221129
  5. PROGRAF [Concomitant]
     Active Substance: TACROLIMUS
     Indication: Myasthenia gravis
     Dosage: 3 MG
     Route: 048
     Dates: start: 202207
  6. PROGRAF [Concomitant]
     Active Substance: TACROLIMUS
     Dosage: 3 MG
     Route: 048
     Dates: start: 20221225
  7. PREDONINE [Concomitant]
     Active Substance: PREDNISOLONE
     Indication: Myasthenia gravis
     Dosage: 5 MG
     Route: 048
     Dates: start: 20220324
  8. PREDONINE [Concomitant]
     Active Substance: PREDNISOLONE
     Dosage: 15 MG
     Route: 048
     Dates: start: 202207
  9. SOLU-MEDROL [Concomitant]
     Active Substance: METHYLPREDNISOLONE SODIUM SUCCINATE
     Indication: Myasthenia gravis
     Dosage: 1000 MG
     Route: 042
     Dates: start: 202207, end: 20220722
  10. SOLIRIS [Concomitant]
     Active Substance: ECULIZUMAB
     Indication: Myasthenia gravis
     Dosage: 900 MG
     Route: 042
     Dates: start: 20230124, end: 20230523
  11. SOLIRIS [Concomitant]
     Active Substance: ECULIZUMAB
     Dosage: 900 MG
     Route: 042
     Dates: end: 20230620
  12. ULTOMIRIS [Concomitant]
     Active Substance: RAVULIZUMAB-CWVZ
     Indication: Myasthenia gravis
     Dosage: 2400 MG
     Route: 042
     Dates: start: 20230606, end: 20230606
  13. ULTOMIRIS [Concomitant]
     Active Substance: RAVULIZUMAB-CWVZ
     Indication: Product used for unknown indication
     Dosage: 3000 MG
     Route: 042
     Dates: start: 20230620
  14. ULTOMIRIS [Concomitant]
     Active Substance: RAVULIZUMAB-CWVZ
     Dosage: 3000 MG
     Route: 042
     Dates: start: 202308, end: 202405

REACTIONS (2)
  - Myasthenia gravis [Recovering/Resolving]
  - Myasthenia gravis [Recovering/Resolving]

NARRATIVE: CASE EVENT DATE: 20220621
